FAERS Safety Report 8008410-0 (Version None)
Quarter: 2011Q4

REPORT INFORMATION
  Report Type: 
  Country: None (occurrence: None)
  Receive Date: 20111227
  Receipt Date: 20111222
  Transmission Date: 20120403
  Serious: Yes (Other)
  Sender: FDA-Public Use
  Company Number: AU-JNJFOC-20111210475

PATIENT
  Sex: Male

DRUGS (8)
  1. STELARA [Suspect]
     Route: 058
     Dates: start: 20110401
  2. IRBESARTAN + HYDROCHLOROTHIAZIDE [Concomitant]
  3. STELARA [Suspect]
     Route: 058
     Dates: start: 20110711
  4. STELARA [Suspect]
     Indication: PRODUCT USED FOR UNKNOWN INDICATION
     Route: 058
     Dates: start: 20101015
  5. STELARA [Suspect]
     Route: 058
     Dates: start: 20100917
  6. STELARA [Suspect]
     Route: 058
     Dates: start: 20110624
  7. IBRUPROFEN [Concomitant]
  8. STELARA [Suspect]
     Route: 058
     Dates: start: 20101120

REACTIONS (1)
  - ARTHRITIS [None]
